FAERS Safety Report 7003969-4 (Version None)
Quarter: 2010Q3

REPORT INFORMATION
  Report Type: 
  Country: None (occurrence: None)
  Receive Date: 20100920
  Receipt Date: 20091214
  Transmission Date: 20110219
  Serious: No
  Sender: FDA-Public Use
  Company Number: US-WYE-H12644509

PATIENT
  Sex: Female
  Weight: 69.92 kg

DRUGS (3)
  1. PRISTIQ [Suspect]
     Indication: DEPRESSION
     Route: 048
     Dates: start: 20090301
  2. ZYRTEC [Concomitant]
  3. TOPAMAX [Concomitant]

REACTIONS (1)
  - COELIAC DISEASE [None]
